FAERS Safety Report 7309944-4 (Version None)
Quarter: 2011Q1

REPORT INFORMATION
  Report Type: 
  Country: None (occurrence: None)
  Receive Date: 20110224
  Receipt Date: 20110216
  Transmission Date: 20110831
  Serious: Yes (Hospitalization)
  Sender: FDA-Public Use
  Company Number: US-JNJFOC-20110205724

PATIENT
  Sex: Female

DRUGS (2)
  1. CHILDREN'S BENADRYL ALLERGY LIQUID CHERRY [Suspect]
     Route: 048
  2. CHILDREN'S BENADRYL ALLERGY LIQUID CHERRY [Suspect]
     Indication: MULTIPLE ALLERGIES
     Dosage: TWO TEASPOONSFUL
     Route: 048

REACTIONS (3)
  - BLOOD PRESSURE DECREASED [None]
  - LOSS OF CONSCIOUSNESS [None]
  - PRODUCT QUALITY ISSUE [None]
